FAERS Safety Report 13162620 (Version 1)
Quarter: 2017Q1

REPORT INFORMATION
  Report Type: Spontaneous
  Country: CA (occurrence: CA)
  Receive Date: 20170130
  Receipt Date: 20170130
  Transmission Date: 20170428
  Serious: Yes (Other)
  Sender: FDA-Public Use
  Company Number: CA-PFIZER INC-2016479964

PATIENT
  Age: 45 Year
  Sex: Female

DRUGS (3)
  1. CLARITHROMYCIN. [Suspect]
     Active Substance: CLARITHROMYCIN
     Dosage: 500 MG TWO EVERY DAY
  2. METRONIDAZOLE. [Suspect]
     Active Substance: METRONIDAZOLE
     Dosage: 500 MG THREE EVERY DAY (5 MG/ML INJECTION)
  3. PANTOPRAZOLE [Suspect]
     Active Substance: PANTOPRAZOLE SODIUM
     Dosage: 400 MG TWO EVERY DAY

REACTIONS (9)
  - Pruritus [Unknown]
  - Fatigue [Unknown]
  - Visual impairment [Unknown]
  - Clostridium test positive [Unknown]
  - Asthenia [Unknown]
  - Glossodynia [Unknown]
  - Dysgeusia [Unknown]
  - Confusional state [Unknown]
  - Rash [Unknown]
